FAERS Safety Report 4455398-5 (Version None)
Quarter: 2004Q3

REPORT INFORMATION
  Report Type: 
  Country: None (occurrence: None)
  Receive Date: 20040830
  Receipt Date: 20040519
  Transmission Date: 20050211
  Serious: No
  Sender: FDA-Public Use
  Company Number: 205528

PATIENT
  Age: 54 Year
  Sex: Male
  Weight: 92 kg

DRUGS (9)
  1. XOLAIR [Suspect]
     Indication: ASTHMA
     Dosage: 375 MG,Q2W,SUBCUTANEOUS
     Route: 058
     Dates: start: 20040305
  2. PREDNISONE [Concomitant]
  3. ALLEGRA-D [Concomitant]
  4. ALBUTEROL INHALER (ALBUTEROL SULFATE, ALBUTEROL) [Concomitant]
  5. ADVAIR DISKUS (SALMETEROL XINAFOATE, FLUTICASONE PROPIONATE) [Concomitant]
  6. SINGULAIR [Concomitant]
  7. DILANTIN [Concomitant]
  8. LOTREL (AMLODIPINE BESYLATE, BENAZEPRIL HYDROCHLORIDE) [Concomitant]
  9. MAXZIDE [Concomitant]

REACTIONS (1)
  - URTICARIA [None]
